FAERS Safety Report 25127092 (Version 1)
Quarter: 2025Q1

REPORT INFORMATION
  Report Type: Spontaneous
  Country: US (occurrence: US)
  Receive Date: 20250327
  Receipt Date: 20250327
  Transmission Date: 20250409
  Serious: No
  Sender: UCB
  Company Number: US-UCBSA-2025006956

PATIENT
  Sex: Female

DRUGS (1)
  1. BIMZELX [Suspect]
     Active Substance: BIMEKIZUMAB-BKZX
     Indication: Psoriasis
     Dosage: 320 MILLIGRAM, EV 4 WEEKS (THEN 2 PENS EVERY 8 WEEKS THEREAFTER)
     Route: 058
     Dates: start: 202412

REACTIONS (5)
  - Injection site reaction [Recovered/Resolved]
  - Arthralgia [Unknown]
  - Psoriasis [Unknown]
  - Nasopharyngitis [Unknown]
  - Skin reaction [Recovered/Resolved]
